FAERS Safety Report 21666312 (Version 1)
Quarter: 2022Q4

REPORT INFORMATION
  Report Type: Spontaneous
  Country: FR (occurrence: FR)
  Receive Date: 20221201
  Receipt Date: 20221201
  Transmission Date: 20230113
  Serious: Yes (Other)
  Sender: FDA-Public Use
  Company Number: None

PATIENT
  Age: 18 Year
  Sex: Male

DRUGS (3)
  1. FENTANYL [Suspect]
     Active Substance: FENTANYL
     Indication: General anaesthesia
     Dosage: UNIT DOSE: 1 DF, FREQUENCY TIME : 1 DAYS, DURATION : 1 DAY
     Route: 065
     Dates: start: 1990, end: 1990
  2. DIPRIVAN [Suspect]
     Active Substance: PROPOFOL
     Indication: General anaesthesia
     Dosage: UNIT DOSE: 1 DF, FREQUENCY TIME : 1 DAYS, DURATION : 1 DAY
     Dates: start: 1990, end: 1990
  3. SUCCINYLCHOLINE [Suspect]
     Active Substance: SUCCINYLCHOLINE
     Indication: General anaesthesia
     Dosage: UNIT DOSE: 1 DF, FREQUENCY TIME : 1 DAYS, DURATION : 1 DAY
     Dates: start: 1990, end: 1990

REACTIONS (2)
  - Type I hypersensitivity [Recovered/Resolved]
  - Allergy test negative [Recovered/Resolved]

NARRATIVE: CASE EVENT DATE: 19900101
